FAERS Safety Report 17790706 (Version 3)
Quarter: 2020Q3

REPORT INFORMATION
  Report Type: Report from Study
  Country: JP (occurrence: JP)
  Receive Date: 20200514
  Receipt Date: 20200831
  Transmission Date: 20201102
  Serious: Yes (Other)
  Sender: FDA-Public Use
  Company Number: JP-ALEXION PHARMACEUTICALS INC.-A202001958

PATIENT

DRUGS (10)
  1. SOLIRIS [Suspect]
     Active Substance: ECULIZUMAB
     Dosage: 1200 MG, Q2W
     Route: 042
     Dates: start: 20191226
  2. MESTINON [Concomitant]
     Active Substance: PYRIDOSTIGMINE BROMIDE
     Dosage: 60 MG, QD
     Route: 048
     Dates: start: 20200625
  3. SOLIRIS [Suspect]
     Active Substance: ECULIZUMAB
     Indication: MYASTHENIA GRAVIS
     Dosage: 900 MG, QW
     Route: 042
     Dates: start: 20191129, end: 20191220
  4. PROGRAF [Concomitant]
     Active Substance: TACROLIMUS
     Dosage: 2 MG, QD
     Route: 048
     Dates: start: 20191129
  5. PREDONINE [Concomitant]
     Active Substance: PREDNISOLONE
     Dosage: 20 MG, 0.5 TIMES A DAY
     Route: 048
     Dates: start: 20191129, end: 20200401
  6. PREDONINE [Concomitant]
     Active Substance: PREDNISOLONE
     Dosage: 18 MG, 0.5 TIMES A DAY
     Route: 048
     Dates: start: 20200416
  7. PREDONINE [Concomitant]
     Active Substance: PREDNISOLONE
     Dosage: 19 MG, 0.5 TIMES A DAY
     Route: 048
     Dates: start: 20200402, end: 20200415
  8. PREDONINE [Concomitant]
     Active Substance: PREDNISOLONE
     Indication: MYASTHENIA GRAVIS
     Dosage: 20 MG, 0.5 TIMES A DAY
     Route: 048
     Dates: start: 20181218
  9. PROGRAF [Concomitant]
     Active Substance: TACROLIMUS
     Indication: MYASTHENIA GRAVIS
     Dosage: 2 MG, QD
     Route: 048
     Dates: start: 20181015
  10. MESTINON [Concomitant]
     Active Substance: PYRIDOSTIGMINE BROMIDE
     Indication: MYASTHENIA GRAVIS
     Dosage: 60 MG, 2?3 TIMES A DAY
     Route: 048
     Dates: start: 20181129

REACTIONS (3)
  - Diarrhoea [Recovered/Resolved]
  - Ulcerative keratitis [Recovered/Resolved]
  - Conjunctival haemorrhage [Recovered/Resolved]

NARRATIVE: CASE EVENT DATE: 20200128
